FAERS Safety Report 14748294 (Version 1)
Quarter: 2018Q2

REPORT INFORMATION
  Report Type: Spontaneous
  Country: US (occurrence: US)
  Receive Date: 20180411
  Receipt Date: 20180411
  Transmission Date: 20180711
  Serious: Yes (Hospitalization, Other)
  Sender: FDA-Public Use
  Company Number: US-AMGEN-USASP2017088443

PATIENT
  Age: 79 Year
  Sex: Female
  Weight: 93.88 kg

DRUGS (8)
  1. PROLIA [Suspect]
     Active Substance: DENOSUMAB
     Indication: OSTEOPOROSIS
     Dosage: 60 MG/ML, UNK
     Route: 065
     Dates: start: 20170518, end: 2017
  2. VITAMIN C [Concomitant]
     Active Substance: ASCORBIC ACID
  3. CALCIUM [Concomitant]
     Active Substance: CALCIUM
     Dosage: UNK
  4. ELIQUIS [Concomitant]
     Active Substance: APIXABAN
  5. VITAMIN D [Concomitant]
     Active Substance: CHOLECALCIFEROL
     Dosage: UNK
  6. ASA [Concomitant]
     Active Substance: ASPIRIN
     Dosage: 81 UNK, UNK
  7. VITAMIN B12 [Concomitant]
     Active Substance: CYANOCOBALAMIN
  8. CRANBERRY. [Concomitant]
     Active Substance: CRANBERRY

REACTIONS (18)
  - Sleep disorder due to a general medical condition [Unknown]
  - Hypoaesthesia [Unknown]
  - Blood potassium decreased [Recovering/Resolving]
  - Arthralgia [Not Recovered/Not Resolved]
  - Pain in extremity [Not Recovered/Not Resolved]
  - Muscle tightness [Unknown]
  - Adverse drug reaction [Unknown]
  - Hepatic enzyme increased [Unknown]
  - Nasal congestion [Not Recovered/Not Resolved]
  - Atrial fibrillation [Recovering/Resolving]
  - Joint stiffness [Not Recovered/Not Resolved]
  - Bone pain [Not Recovered/Not Resolved]
  - Musculoskeletal pain [Not Recovered/Not Resolved]
  - Pain in jaw [Not Recovered/Not Resolved]
  - Blood glucose increased [Recovering/Resolving]
  - Mobility decreased [Not Recovered/Not Resolved]
  - Neuropathy peripheral [Recovered/Resolved]
  - Urinary tract infection [Unknown]

NARRATIVE: CASE EVENT DATE: 2017
